FAERS Safety Report 16945624 (Version 1)
Quarter: 2019Q4

REPORT INFORMATION
  Report Type: Spontaneous
  Country: US (occurrence: US)
  Receive Date: 20191022
  Receipt Date: 20191022
  Transmission Date: 20200122
  Serious: Yes (Other)
  Sender: FDA-Public Use
  Company Number: US-SA-2019SA290330

PATIENT
  Age: 81 Year
  Sex: Female

DRUGS (1)
  1. AMBIEN [Suspect]
     Active Substance: ZOLPIDEM TARTRATE
     Indication: INSOMNIA
     Dosage: 10 MG, QD (NIGHTLY)
     Route: 065

REACTIONS (11)
  - Hip fracture [Unknown]
  - Coma [Unknown]
  - Amnesia [Unknown]
  - Diarrhoea [Unknown]
  - Vomiting [Unknown]
  - Incorrect product administration duration [Unknown]
  - Tinnitus [Unknown]
  - Tremor [Unknown]
  - Fall [Unknown]
  - Suicidal ideation [Unknown]
  - Drug dependence [Unknown]
